FAERS Safety Report 6300268-0 (Version None)
Quarter: 2009Q3

REPORT INFORMATION
  Report Type: 
  Country: None (occurrence: None)
  Receive Date: 20090803
  Receipt Date: 20090620
  Transmission Date: 20100115
  Serious: Yes (Hospitalization)
  Sender: FDA-Public Use
  Company Number: 2009EU002906

PATIENT
  Age: 67 Year
  Sex: Male

DRUGS (14)
  1. TACROLIMUS [Suspect]
     Indication: RENAL TRANSPLANT
     Dosage: /D
  2. DACLIZUMAB        (DACLIZUMAB) [Suspect]
     Indication: RENAL TRANSPLANT
     Dosage: 120 MG, TOTAL DOSE IV NOS
     Route: 042
     Dates: start: 20030619
  3. MYCOPHENOLATE MOFETIL [Suspect]
     Indication: RENAL TRANSPLANT
     Dosage: 1 G, BID, ORAL
     Route: 048
     Dates: start: 20030619
  4. CYCLOSPORINE [Suspect]
     Indication: RENAL TRANSPLANT
     Dosage: 120 MG, UID/QD, ORAL
     Route: 048
     Dates: start: 20030619
  5. PREDNISOLONE [Suspect]
     Indication: RENAL TRANSPLANT
     Dosage: 250 MG, /D, IV NOS
     Route: 042
     Dates: start: 20030619, end: 20030622
  6. PREDNISOLONE [Suspect]
     Dosage: 7.5 MG, UID/QD, ORAL
     Route: 048
     Dates: start: 20030622
  7. ACTONEL EINMAL WOECHENTLICH       (RISEDRONIC ACID) [Concomitant]
  8. BASILIXIMAB     (BASILIXIMAB) [Concomitant]
  9. CALCITRIOL [Concomitant]
  10. FUROSEMIDE [Concomitant]
  11. GANCICLOVIR [Concomitant]
  12. NITRENDIPINE       (NITRENDIPINE) [Concomitant]
  13. PANTOPRAZOLE SODIUM [Concomitant]
  14. AMPICILLIN AND SULBACTAM [Concomitant]

REACTIONS (2)
  - LUMBAR VERTEBRAL FRACTURE [None]
  - THORACIC VERTEBRAL FRACTURE [None]
